FAERS Safety Report 17214957 (Version 1)
Quarter: 2019Q4

REPORT INFORMATION
  Report Type: Spontaneous
  Country: IT (occurrence: IT)
  Receive Date: 20191230
  Receipt Date: 20191230
  Transmission Date: 20200122
  Serious: Yes (Hospitalization)
  Sender: FDA-Public Use
  Company Number: IT-MYLANLABS-2019M1128598

PATIENT
  Age: 12 Month
  Sex: Female
  Weight: 10 kg

DRUGS (2)
  1. SOTALOL. [Suspect]
     Active Substance: SOTALOL
     Indication: ARRHYTHMIA
     Dosage: 60 MILLIGRAM, QD
     Route: 048
     Dates: start: 20190101, end: 20190819
  2. FLECAINIDE [Suspect]
     Active Substance: FLECAINIDE
     Indication: ARRHYTHMIA
     Dosage: 60 MILLIGRAM, QD
     Route: 048
     Dates: start: 20190101, end: 20190819

REACTIONS (2)
  - Drug ineffective [Unknown]
  - Tachycardia [Unknown]

NARRATIVE: CASE EVENT DATE: 20190819
